FAERS Safety Report 9308239 (Version 2)
Quarter: 2013Q2

REPORT INFORMATION
  Report Type: Spontaneous
  Country: US (occurrence: US)
  Receive Date: 20130524
  Receipt Date: 20130619
  Transmission Date: 20140414
  Serious: Yes (Other)
  Sender: FDA-Public Use
  Company Number: US-PFIZER INC-2013159281

PATIENT
  Age: 68 Year
  Sex: Female
  Weight: 92.97 kg

DRUGS (6)
  1. LYRICA [Suspect]
     Indication: FIBROMYALGIA
     Dosage: 100 MG, 2X/DAY
     Dates: start: 201106
  2. LYRICA [Suspect]
     Indication: NEUROPATHY PERIPHERAL
  3. NORVASC [Suspect]
     Indication: HYPERTENSION
     Dosage: 5 MG, 1X/DAY
     Dates: start: 2011
  4. METOLAZONE [Suspect]
     Indication: SWELLING
     Dosage: 2.5 MG, 1X/DAY
     Dates: start: 201305, end: 201305
  5. CLONIDINE [Suspect]
     Indication: HYPERTENSION
     Dosage: 150 UG, 1X/DAY
  6. INSULIN [Concomitant]
     Indication: DIABETES MELLITUS
     Dosage: UNK

REACTIONS (2)
  - Cardiac failure congestive [Unknown]
  - Urinary tract infection [Unknown]
